FAERS Safety Report 4291805-9 (Version None)
Quarter: 2004Q1

REPORT INFORMATION
  Report Type: 
  Country: None (occurrence: None)
  Receive Date: 20040211
  Receipt Date: 20030519
  Transmission Date: 20041129
  Serious: No
  Sender: FDA-Public Use
  Company Number: US-GLAXOSMITHKLINE-A0408918A

PATIENT
  Age: 45 Year
  Sex: Female

DRUGS (3)
  1. IMITREX [Suspect]
     Indication: MIGRAINE
     Dosage: 100MG UNKNOWN
     Route: 048
  2. SYNTHROID [Concomitant]
     Route: 065
  3. COX-2 INHIBITOR, UNSPECIFIED [Concomitant]
     Route: 065

REACTIONS (2)
  - FATIGUE [None]
  - SKIN DISCOLOURATION [None]
